FAERS Safety Report 9749077 (Version 1)
Quarter: 2013Q4

REPORT INFORMATION
  Report Type: Spontaneous
  Country: US (occurrence: US)
  Receive Date: 20131212
  Receipt Date: 20131212
  Transmission Date: 20140711
  Serious: No
  Sender: FDA-Public Use
  Company Number: US-INCYTE CORPORATION-2013IN002292

PATIENT
  Sex: 0

DRUGS (6)
  1. JAKAFI [Suspect]
     Dosage: 20 MG, QD
     Route: 048
     Dates: start: 20130129
  2. ANAGRELIDE [Concomitant]
  3. HYDROCHLOROTHIAZIDE [Concomitant]
  4. HYDRALAZINE [Concomitant]
  5. OMEPRAZOLE [Concomitant]
  6. CATAPRES [Concomitant]
     Route: 061

REACTIONS (1)
  - Memory impairment [Unknown]
